FAERS Safety Report 9311299 (Version 1)
Quarter: 2013Q2

REPORT INFORMATION
  Report Type: Spontaneous
  Country: GB (occurrence: GB)
  Receive Date: 20130528
  Receipt Date: 20130528
  Transmission Date: 20140414
  Serious: Yes (Life-Threatening, Other)
  Sender: FDA-Public Use
  Company Number: GB-NOVOPROD-378135

PATIENT
  Age: 59 Year
  Sex: Male
  Weight: 88 kg

DRUGS (15)
  1. NOVORAPID [Suspect]
     Indication: DIABETIC NEPHROPATHY
     Dosage: 52 IU, UNK
     Route: 065
     Dates: start: 20130329
  2. NOVORAPID [Suspect]
     Dosage: 18 IU, UNK
     Route: 065
  3. LANTUS [Suspect]
     Indication: DIABETIC NEPHROPATHY
     Dosage: 40 UNK, UNK
     Route: 065
     Dates: start: 20130329
  4. LANTUS [Suspect]
     Dosage: 30 UNK, UNK
  5. ASPIRIN [Concomitant]
     Indication: PRODUCT USED FOR UNKNOWN INDICATION
  6. CETRIZIN                           /00522801/ [Concomitant]
     Indication: PRODUCT USED FOR UNKNOWN INDICATION
  7. DIGOXIN [Concomitant]
     Indication: PRODUCT USED FOR UNKNOWN INDICATION
  8. EPLERENONE [Concomitant]
     Indication: PRODUCT USED FOR UNKNOWN INDICATION
  9. EZETROL [Concomitant]
     Indication: PRODUCT USED FOR UNKNOWN INDICATION
  10. FUROSEMIDE [Concomitant]
     Indication: PRODUCT USED FOR UNKNOWN INDICATION
  11. GLICLAZIDE [Concomitant]
     Indication: PRODUCT USED FOR UNKNOWN INDICATION
  12. LINAGLIPTIN [Concomitant]
     Indication: PRODUCT USED FOR UNKNOWN INDICATION
  13. RAMIPRIL [Concomitant]
     Indication: PRODUCT USED FOR UNKNOWN INDICATION
  14. SALBUTAMOL [Concomitant]
     Indication: PRODUCT USED FOR UNKNOWN INDICATION
  15. SYMBICORT [Concomitant]
     Indication: PRODUCT USED FOR UNKNOWN INDICATION

REACTIONS (5)
  - Ascites [Recovering/Resolving]
  - Pulmonary oedema [Recovering/Resolving]
  - Diarrhoea [Recovering/Resolving]
  - Asthma [Not Recovered/Not Resolved]
  - Oedema peripheral [Recovering/Resolving]
